FAERS Safety Report 6994328-9 (Version None)
Quarter: 2010Q3

REPORT INFORMATION
  Report Type: 
  Country: None (occurrence: None)
  Receive Date: 20100917
  Receipt Date: 20100820
  Transmission Date: 20110219
  Serious: No
  Sender: FDA-Public Use
  Company Number: US-PFIZER INC-2010082318

PATIENT
  Sex: Female

DRUGS (4)
  1. TIKOSYN [Suspect]
     Indication: ATRIAL FIBRILLATION
     Dosage: UNK
     Route: 048
  2. HYDROCHLOROTHIAZIDE [Suspect]
     Dosage: UNK
  3. LEVAQUIN [Suspect]
     Indication: INFECTION
     Dosage: UNK
  4. LIDODERM [Suspect]
     Indication: BACK PAIN
     Dosage: 5 %, UNK
     Route: 062

REACTIONS (2)
  - CONJUNCTIVITIS [None]
  - MALAISE [None]
